FAERS Safety Report 19263645 (Version 1)
Quarter: 2021Q2

REPORT INFORMATION
  Report Type: Spontaneous
  Country: US (occurrence: US)
  Receive Date: 20210514
  Receipt Date: 20210514
  Transmission Date: 20210717
  Serious: Yes (Other)
  Sender: FDA-Public Use
  Company Number: None

PATIENT
  Age: 47 Year
  Sex: Female
  Weight: 81 kg

DRUGS (2)
  1. EXEMESTANE 25MG [Concomitant]
     Active Substance: EXEMESTANE
     Dates: start: 20200710
  2. ZOLEDRONIC ACID FOR INJECTION [Suspect]
     Active Substance: ZOLEDRONIC ACID
     Indication: BREAST CANCER
     Dosage: ?          OTHER FREQUENCY:EVERY 6 MONTHS;?
     Route: 042

REACTIONS (12)
  - Joint swelling [None]
  - Body temperature increased [None]
  - Musculoskeletal chest pain [None]
  - Dyspnoea [None]
  - Mobility decreased [None]
  - Chills [None]
  - Hyperhidrosis [None]
  - Arthralgia [None]
  - Headache [None]
  - Back pain [None]
  - Gait disturbance [None]
  - Tremor [None]

NARRATIVE: CASE EVENT DATE: 20200903
